FAERS Safety Report 7272243-3 (Version None)
Quarter: 2011Q1

REPORT INFORMATION
  Report Type: 
  Country: None (occurrence: None)
  Receive Date: 20110203
  Receipt Date: 20110124
  Transmission Date: 20110831
  Serious: Yes (Hospitalization)
  Sender: FDA-Public Use
  Company Number: PHHO2010US14174

PATIENT
  Sex: Female
  Weight: 61 kg

DRUGS (7)
  1. LISINOPRIL [Suspect]
     Indication: HYPERTENSION
  2. GLIPIZIDE [Concomitant]
     Indication: DIABETES MELLITUS
  3. MIRTAZAPINE [Concomitant]
     Indication: DEPRESSION
  4. BLINDED NO TREATMENT RECEIVED [Suspect]
  5. EXELON [Suspect]
     Indication: DEMENTIA ALZHEIMER'S TYPE
     Dosage: DOUBLE BLIND
     Route: 062
     Dates: start: 20100904
  6. BLINDED EXELON [Suspect]
  7. LEXAPRO [Concomitant]
     Indication: DEPRESSION

REACTIONS (11)
  - HEADACHE [None]
  - LOSS OF CONSCIOUSNESS [None]
  - DIZZINESS [None]
  - FALL [None]
  - SKULL FRACTURE [None]
  - HAEMATOMA [None]
  - VERTIGO POSITIONAL [None]
  - LACERATION [None]
  - SUBARACHNOID HAEMORRHAGE [None]
  - PNEUMOCEPHALUS [None]
  - EAR HAEMORRHAGE [None]
